FAERS Safety Report 7090373-6 (Version None)
Quarter: 2010Q4

REPORT INFORMATION
  Report Type: 
  Country: None (occurrence: None)
  Receive Date: 20101109
  Receipt Date: 20101026
  Transmission Date: 20110411
  Serious: Yes (Hospitalization)
  Sender: FDA-Public Use
  Company Number: PHHY2010FR73054

PATIENT
  Sex: Female

DRUGS (10)
  1. VALSARTAN  AND HYDROCHLOROTHIAZIDE [Suspect]
     Indication: HYPERTENSION
     Dosage: 80/12.5 MG, ONCE A DAY
     Route: 048
     Dates: end: 20100228
  2. MOPRAL [Suspect]
     Dosage: UNK
     Dates: end: 20100228
  3. LASIX [Suspect]
     Dosage: UNK
     Dates: end: 20100228
  4. CITALOPRAM HYDROBROMIDE [Suspect]
     Dosage: 01, DF, ONCE  A DAY
     Dates: start: 20100128, end: 20100228
  5. INSULIN [Concomitant]
     Indication: DIABETES MELLITUS
     Dosage: 8 IU, TWICE DAY
  6. HYPERIUM [Concomitant]
     Indication: HYPERTENSION
     Dosage: 01 MG, QD
     Dates: end: 20100228
  7. STILNOX [Concomitant]
     Dosage: 01, ONCE A DAY
  8. TEMESTA [Concomitant]
     Dosage: 1 MG, ONCE DAY
  9. LEVOTHYROXINE SODIUM [Concomitant]
     Dosage: 25 MCG, ONCE A DAY
  10. NITRENDIPINE [Concomitant]
     Dosage: 20 MG, QD
     Dates: end: 20100228

REACTIONS (4)
  - BLOOD POTASSIUM DECREASED [None]
  - CONFUSIONAL STATE [None]
  - DEHYDRATION [None]
  - HYPONATRAEMIA [None]
